FAERS Safety Report 8928044 (Version 1)
Quarter: 2012Q4

REPORT INFORMATION
  Report Type: Spontaneous
  Country: BR (occurrence: None)
  Receive Date: 20121120
  Receipt Date: 20121120
  Transmission Date: 20130627
  Serious: Yes (Other)
  Sender: FDA-Public Use
  Company Number: BR-ACCORD-015230

PATIENT
  Age: 41 Year
  Sex: Female
  Weight: 62 kg

DRUGS (4)
  1. PACLITAXEL (PACLITAXEL) [Suspect]
     Indication: MALIGNANT BREAST NEOPLASM
     Route: 042
     Dates: start: 20121022, end: 20121022
  2. ONDANSETRON [Concomitant]
  3. DEXAMETHASONE [Concomitant]
  4. RANITIDINE [Concomitant]

REACTIONS (2)
  - Respiratory distress [None]
  - Erythema [None]
